FAERS Safety Report 15714218 (Version 3)
Quarter: 2019Q2

REPORT INFORMATION
  Report Type: Spontaneous
  Country: JP (occurrence: JP)
  Receive Date: 20181212
  Receipt Date: 20190501
  Transmission Date: 20190711
  Serious: Yes (Death, Other)
  Sender: FDA-Public Use
  Company Number: JP-PFIZER INC-2018508314

PATIENT
  Age: 45 Year
  Sex: Male

DRUGS (9)
  1. MYSLEE [Concomitant]
     Active Substance: ZOLPIDEM TARTRATE
     Indication: INITIAL INSOMNIA
     Dosage: 5 MG, 1X/DAY
     Route: 048
     Dates: start: 20170428, end: 20180105
  2. ROZEREM [Concomitant]
     Active Substance: RAMELTEON
     Indication: IRREGULAR SLEEP WAKE RHYTHM DISORDER
     Dosage: 8 MG, 1X/DAY
     Route: 048
     Dates: start: 20170428, end: 20180105
  3. EFFEXOR [Suspect]
     Active Substance: VENLAFAXINE HYDROCHLORIDE
     Dosage: 75 MG, 1X/DAY
     Route: 048
     Dates: start: 20171110
  4. VALSARTAN. [Concomitant]
     Active Substance: VALSARTAN
     Dosage: 40 MG, 1X/DAY
     Route: 048
  5. MUCODYNE [Concomitant]
     Active Substance: CARBOCYSTEINE
     Dosage: 1500 MG, 1X/DAY
     Route: 048
  6. LEXAPRO [Concomitant]
     Active Substance: ESCITALOPRAM OXALATE
     Indication: DEPRESSION
     Dosage: 10 MG, 1X/DAY
     Route: 048
     Dates: start: 20170428, end: 20181110
  7. DELLEGRA [Concomitant]
     Active Substance: FEXOFENADINE HYDROCHLORIDE\PSEUDOEPHEDRINE HYDROCHLORIDE
     Dosage: 2 DF, 2X/DAY
     Route: 048
  8. MEILAX [Concomitant]
     Active Substance: ETHYL LOFLAZEPATE
     Dosage: 1 MG, 1X/DAY
     Route: 048
  9. EFFEXOR [Suspect]
     Active Substance: VENLAFAXINE HYDROCHLORIDE
     Indication: DEPRESSION
     Dosage: 37.5 MG, 1X/DAY
     Route: 048
     Dates: start: 20151027, end: 20171110

REACTIONS (5)
  - Death [Fatal]
  - Hypertension [Unknown]
  - Condition aggravated [Unknown]
  - Dyslipidaemia [Unknown]
  - Obesity [Unknown]

NARRATIVE: CASE EVENT DATE: 20181201
